FAERS Safety Report 5909391-3 (Version None)
Quarter: 2008Q4

REPORT INFORMATION
  Report Type: 
  Country: None (occurrence: None)
  Receive Date: 20081006
  Receipt Date: 20080930
  Transmission Date: 20090506
  Serious: No
  Sender: FDA-Public Use
  Company Number: US-B.I. PHARMACEUTICALS,INC./RIDGEFIELD-2008-BP-10547BP

PATIENT
  Sex: Male

DRUGS (2)
  1. FLOMAX [Suspect]
  2. ORAL DIABETES MEDICATION (UNSPECIFIED) [Concomitant]
     Indication: TYPE 2 DIABETES MELLITUS

REACTIONS (1)
  - CATARACT OPERATION [None]
